FAERS Safety Report 9963682 (Version 1)
Quarter: 2014Q1

REPORT INFORMATION
  Report Type: Spontaneous
  Country: US (occurrence: US)
  Receive Date: 20140305
  Receipt Date: 20140305
  Transmission Date: 20141002
  Serious: No
  Sender: FDA-Public Use
  Company Number: US-ABBVIE-13P-163-1118877-00

PATIENT
  Age: 56 Year
  Sex: Female
  Weight: 49.94 kg

DRUGS (10)
  1. HUMIRA [Suspect]
     Indication: RHEUMATOID ARTHRITIS
     Dates: start: 20130623, end: 20130707
  2. METHOTREXATE [Concomitant]
     Indication: RHEUMATOID ARTHRITIS
  3. PLAQUENIL [Concomitant]
     Indication: RHEUMATOID ARTHRITIS
  4. RANITIDINE [Concomitant]
     Indication: GASTRIC DISORDER
  5. FOLIC ACID [Concomitant]
     Indication: SUPPLEMENTATION THERAPY
  6. ESTROGEN [Concomitant]
     Indication: MENOPAUSE
  7. ADVIL [Concomitant]
     Indication: EAR DISCOMFORT
  8. ADVIL [Concomitant]
     Indication: SINUS HEADACHE
  9. ADVIL [Concomitant]
     Indication: MIGRAINE
  10. ADVIL [Concomitant]
     Indication: SINUS HEADACHE

REACTIONS (11)
  - Injection site vesicles [Recovering/Resolving]
  - Injection site pruritus [Recovering/Resolving]
  - Injection site erythema [Recovering/Resolving]
  - Injection site erythema [Recovering/Resolving]
  - Injection site pruritus [Recovering/Resolving]
  - Injection site pain [Recovering/Resolving]
  - Injection site warmth [Recovering/Resolving]
  - Tinnitus [Not Recovered/Not Resolved]
  - Dizziness [Recovered/Resolved]
  - Toothache [Not Recovered/Not Resolved]
  - Injection site rash [Recovering/Resolving]
